FAERS Safety Report 8839430 (Version 1)
Quarter: 2012Q4

REPORT INFORMATION
  Report Type: Spontaneous
  Country: US (occurrence: None)
  Receive Date: 20121012
  Receipt Date: 20121012
  Transmission Date: 20130627
  Serious: Yes (Disabling, Other)
  Sender: FDA-Public Use
  Company Number: None

PATIENT
  Age: 32 Year
  Sex: Female
  Weight: 108.86 kg

DRUGS (3)
  1. BEYAZ [Suspect]
     Indication: CONTRACEPTION
     Route: 048
     Dates: start: 20080101, end: 20120508
  2. BEYAZ [Suspect]
     Indication: BACK PAIN
     Route: 048
     Dates: start: 20080101, end: 20120508
  3. BEYAZ [Suspect]
     Indication: MENSTRUAL CYCLE MANAGEMENT
     Route: 048
     Dates: start: 20080101, end: 20120508

REACTIONS (2)
  - Ovarian cyst ruptured [None]
  - Hepatic adenoma [None]
